FAERS Safety Report 7652691-X (Version None)
Quarter: 2011Q3

REPORT INFORMATION
  Report Type: 
  Country: None (occurrence: None)
  Receive Date: 20110803
  Receipt Date: 20110722
  Transmission Date: 20111222
  Serious: Yes (Hospitalization)
  Sender: FDA-Public Use
  Company Number: US-UCBSA-036230

PATIENT
  Sex: Female

DRUGS (6)
  1. ZYVOX [Concomitant]
  2. CIMZIA [Suspect]
     Indication: CROHN'S DISEASE
     Route: 058
     Dates: start: 20090212, end: 20110620
  3. DIGOXIN [Concomitant]
     Dosage: UNIT DOSE: 1
  4. ENTOCORT EC [Concomitant]
     Dosage: UNIT DOSE: 3
     Route: 048
  5. LOMOTIL [Concomitant]
  6. PENTASA [Concomitant]
     Dosage: 500MG 2UNITS QID.

REACTIONS (1)
  - ABDOMINAL WALL ABSCESS [None]
